FAERS Safety Report 16758879 (Version 1)
Quarter: 2019Q3

REPORT INFORMATION
  Report Type: Spontaneous
  Country: US (occurrence: US)
  Receive Date: 20190830
  Receipt Date: 20190830
  Transmission Date: 20191005
  Serious: No
  Sender: FDA-Public Use
  Company Number: US-ASTRAZENECA-2019SF10701

PATIENT
  Age: 802 Month
  Sex: Female
  Weight: 72.6 kg

DRUGS (4)
  1. BYDUREON BCISE [Suspect]
     Active Substance: EXENATIDE
     Indication: TYPE 2 DIABETES MELLITUS
     Route: 058
     Dates: start: 20190701
  2. VITAMIN D [Concomitant]
     Active Substance: VITAMIN D NOS
     Dates: start: 2019
  3. LINZESS [Concomitant]
     Active Substance: LINACLOTIDE
     Indication: CONSTIPATION
     Dosage: 72.0MG AS REQUIRED
     Route: 048
  4. BABY ASPIRIN [Concomitant]
     Active Substance: ASPIRIN
     Dates: start: 2019

REACTIONS (9)
  - Burning sensation [Unknown]
  - Anxiety [Not Recovered/Not Resolved]
  - Toothache [Not Recovered/Not Resolved]
  - Hyperventilation [Unknown]
  - Blood glucose fluctuation [Unknown]
  - Tremor [Not Recovered/Not Resolved]
  - Confusional state [Unknown]
  - Nervousness [Unknown]
  - Disorientation [Unknown]

NARRATIVE: CASE EVENT DATE: 201907
